FAERS Safety Report 18068948 (Version 2)
Quarter: 2020Q3

REPORT INFORMATION
  Report Type: Spontaneous
  Country: US (occurrence: US)
  Receive Date: 20200724
  Receipt Date: 20200812
  Transmission Date: 20201103
  Serious: Yes (Other)
  Sender: FDA-Public Use
  Company Number: US-BAXTER-2020BAX015153

PATIENT
  Age: 57 Year
  Sex: Male

DRUGS (4)
  1. DOXIL [Suspect]
     Active Substance: DOXORUBICIN HYDROCHLORIDE
     Indication: ANGIOCENTRIC LYMPHOMA
     Dosage: 5 CYCLES
     Route: 065
  2. VINCRISTINE [Suspect]
     Active Substance: VINCRISTINE
     Indication: ANGIOCENTRIC LYMPHOMA
     Dosage: 5 CYCLES
     Route: 065
  3. CYCLOPHOSPHAMIDE FOR INJECTION, USP [Suspect]
     Active Substance: CYCLOPHOSPHAMIDE
     Indication: ANGIOCENTRIC LYMPHOMA
     Dosage: 5 CYCLES
     Route: 065
  4. PREDNISONE. [Suspect]
     Active Substance: PREDNISONE
     Indication: ANGIOCENTRIC LYMPHOMA
     Dosage: 5 CYCLES
     Route: 065

REACTIONS (2)
  - Eosinophilia [Recovered/Resolved]
  - Polymyositis [Recovered/Resolved]
